FAERS Safety Report 5952892-2 (Version None)
Quarter: 2008Q4

REPORT INFORMATION
  Report Type: 
  Country: None (occurrence: None)
  Receive Date: 20081114
  Receipt Date: 20081111
  Transmission Date: 20090506
  Serious: Yes (Other)
  Sender: FDA-Public Use
  Company Number: US-ASTRAZENECA-2008UW22548

PATIENT
  Age: 62 Year
  Sex: Female
  Weight: 77.1 kg

DRUGS (4)
  1. ARIMIDEX [Suspect]
     Indication: BREAST CANCER FEMALE
     Route: 048
     Dates: start: 20060401
  2. ARIMIDEX [Suspect]
     Indication: RADICAL MASTECTOMY
     Route: 048
     Dates: start: 20060401
  3. NEVANAC [Concomitant]
  4. CALCIUM-VIACTIVE [Concomitant]

REACTIONS (25)
  - ANXIETY [None]
  - ARTHRALGIA [None]
  - ARTHRITIS [None]
  - ASTHENIA [None]
  - BACK PAIN [None]
  - BLOOD CHOLESTEROL INCREASED [None]
  - BONE PAIN [None]
  - COUGH [None]
  - DYSPNOEA [None]
  - FALL [None]
  - GRIP STRENGTH DECREASED [None]
  - HEADACHE [None]
  - HOT FLUSH [None]
  - INSOMNIA [None]
  - JOINT DISLOCATION [None]
  - JOINT INJURY [None]
  - MUSCLE SPASMS [None]
  - OEDEMA PERIPHERAL [None]
  - OROPHARYNGEAL PAIN [None]
  - OSTEOPENIA [None]
  - PAIN [None]
  - PAIN IN EXTREMITY [None]
  - PARAESTHESIA [None]
  - PELVIC PAIN [None]
  - UVEITIS [None]
